FAERS Safety Report 21578679 (Version 1)
Quarter: 2022Q4

REPORT INFORMATION
  Report Type: Spontaneous
  Country: RU (occurrence: RU)
  Receive Date: 20221110
  Receipt Date: 20221110
  Transmission Date: 20230113
  Serious: Yes (Other)
  Sender: FDA-Public Use
  Company Number: RU-TAKEDA-2022TUS083628

PATIENT
  Age: 55 Year
  Sex: Male

DRUGS (2)
  1. ALOGLIPTIN BENZOATE\PIOGLITAZONE HYDROCHLORIDE [Suspect]
     Active Substance: ALOGLIPTIN BENZOATE\PIOGLITAZONE HYDROCHLORIDE
     Indication: Product used for unknown indication
     Dosage: UNK
     Route: 065
  2. ALOGLIPTIN BENZOATE\PIOGLITAZONE HYDROCHLORIDE [Suspect]
     Active Substance: ALOGLIPTIN BENZOATE\PIOGLITAZONE HYDROCHLORIDE
     Dosage: UNK
     Route: 065

REACTIONS (1)
  - Kidney contusion [Recovered/Resolved]
